FAERS Safety Report 23509103 (Version 6)
Quarter: 2025Q2

REPORT INFORMATION
  Report Type: Spontaneous
  Country: US (occurrence: US)
  Receive Date: 20240210
  Receipt Date: 20250403
  Transmission Date: 20250717
  Serious: No
  Sender: ABBVIE
  Company Number: US-ABBVIE-5624133

PATIENT
  Age: 36 Year
  Sex: Female

DRUGS (3)
  1. LILETTA [Suspect]
     Active Substance: LEVONORGESTREL
     Indication: Contraception
     Route: 015
     Dates: start: 20220324
  2. VITAMIN D3 [Concomitant]
     Active Substance: CHOLECALCIFEROL
     Indication: Vitamin supplementation
  3. ASPIRIN [Concomitant]
     Active Substance: ASPIRIN
     Indication: Headache

REACTIONS (8)
  - Maternal exposure during pregnancy [Unknown]
  - Drug ineffective [Not Recovered/Not Resolved]
  - Secretion discharge [Unknown]
  - Gestational diabetes [Not Recovered/Not Resolved]
  - Device expulsion [Not Recovered/Not Resolved]
  - Blood glucose increased [Unknown]
  - Pregnancy on contraceptive [Unknown]
  - Live birth [Unknown]

NARRATIVE: CASE EVENT DATE: 20230626
